FAERS Safety Report 5895962-X (Version None)
Quarter: 2008Q3

REPORT INFORMATION
  Report Type: 
  Country: None (occurrence: None)
  Receive Date: 20080924
  Receipt Date: 20080922
  Transmission Date: 20090109
  Serious: Yes (Death)
  Sender: FDA-Public Use
  Company Number: JM-B.I. PHARMACEUTICALS,INC./RIDGEFIELD-2008-CN-00481CN

PATIENT
  Age: 70 Year
  Sex: Female

DRUGS (2)
  1. AGGRENOX [Suspect]
     Indication: CEREBROVASCULAR ACCIDENT PROPHYLAXIS
     Dosage: TWICE DAILY
     Route: 048
     Dates: start: 20080601, end: 20080915
  2. ASPIRIN [Concomitant]
     Dosage: 81MG
     Route: 048

REACTIONS (1)
  - HAEMORRHAGIC STROKE [None]
